FAERS Safety Report 5814576-0 (Version None)
Quarter: 2008Q3

REPORT INFORMATION
  Report Type: 
  Country: None (occurrence: None)
  Receive Date: 20080718
  Receipt Date: 20071009
  Transmission Date: 20090109
  Serious: No
  Sender: FDA-Public Use
  Company Number: US-KINGPHARMUSA00001-K200701313

PATIENT

DRUGS (10)
  1. LEVOXYL [Suspect]
     Dosage: .88 MCG, QD
     Route: 048
     Dates: end: 20060401
  2. LEVOTHYROXINE SODIUM [Suspect]
     Indication: THYROID DISORDER
     Dosage: .88 MCG, QD
     Route: 048
     Dates: start: 20060401
  3. LEVOTHYROXINE SODIUM [Suspect]
     Dates: start: 20070101
  4. SINGULAIR [Concomitant]
     Indication: HYPERSENSITIVITY
     Dosage: 10 MG, QD
  5. SINGULAIR [Concomitant]
     Indication: ASTHMA
  6. ALBUTEROL [Concomitant]
     Indication: HYPERSENSITIVITY
     Dosage: UNK, QD
  7. ALBUTEROL [Concomitant]
     Indication: ASTHMA
  8. ADVIL LIQUI-GELS [Concomitant]
     Dosage: UNK, PRN
  9. HYDROCODONE BITARTRATE [Concomitant]
     Indication: BACK PAIN
  10. FENTANYL                           /00174602/ [Concomitant]
     Indication: PAIN IN EXTREMITY
     Dosage: UNK, UNK
     Dates: start: 20070501

REACTIONS (23)
  - ABDOMINAL PAIN UPPER [None]
  - ANGINA PECTORIS [None]
  - BLOOD PRESSURE INCREASED [None]
  - CHEST PAIN [None]
  - EATING DISORDER [None]
  - FEELING ABNORMAL [None]
  - HAIR COLOUR CHANGES [None]
  - HEART RATE INCREASED [None]
  - HYPERHIDROSIS [None]
  - INSOMNIA [None]
  - IRRITABILITY [None]
  - JOINT INJURY [None]
  - JOINT STIFFNESS [None]
  - MALAISE [None]
  - NAUSEA [None]
  - NERVOUSNESS [None]
  - PAIN IN EXTREMITY [None]
  - POLYCYSTIC OVARIES [None]
  - RECTAL HAEMORRHAGE [None]
  - TREMOR [None]
  - UNEVALUABLE EVENT [None]
  - VOMITING [None]
  - WEIGHT DECREASED [None]
